FAERS Safety Report 4723478-2 (Version None)
Quarter: 2005Q3

REPORT INFORMATION
  Report Type: 
  Country: None (occurrence: None)
  Receive Date: 20050725
  Receipt Date: 20050712
  Transmission Date: 20060218
  Serious: Yes (Hospitalization)
  Sender: FDA-Public Use
  Company Number: FR-GLAXOSMITHKLINE-B0388009A

PATIENT
  Age: 3 Day
  Sex: Male

DRUGS (3)
  1. RETROVIR [Suspect]
     Indication: ANTIVIRAL PROPHYLAXIS
     Dosage: .6ML FOUR TIMES PER DAY
     Route: 048
     Dates: start: 20050311
  2. UVESTEROL D [Concomitant]
     Route: 048
     Dates: start: 20050314
  3. ZYMA-D2 [Concomitant]
     Route: 048
     Dates: start: 20050311

REACTIONS (3)
  - HAEMODILUTION [None]
  - HYPOCALCAEMIA [None]
  - HYPONATRAEMIA [None]
